FAERS Safety Report 8240063-9 (Version None)
Quarter: 2012Q1

REPORT INFORMATION
  Report Type: 
  Country: None (occurrence: None)
  Receive Date: 20120328
  Receipt Date: 20120319
  Transmission Date: 20120608
  Serious: Yes (Other)
  Sender: FDA-Public Use
  Company Number: BR-BAYER-2012-026921

PATIENT
  Sex: Female
  Weight: 74.83 kg

DRUGS (2)
  1. MIRENA [Suspect]
     Indication: CONTRACEPTION
     Dosage: 20 ?G/D, CONT
     Route: 015
     Dates: start: 20061222, end: 20101104
  2. MIRENA [Suspect]
     Dosage: 20 ?G/D, CONT
     Route: 015
     Dates: start: 20101104

REACTIONS (13)
  - UTERINE INFECTION [None]
  - NEPHROLITHIASIS [None]
  - ABDOMINAL PAIN [None]
  - RENAL PAIN [None]
  - VAGINAL DISCHARGE [None]
  - BLADDER DISCOMFORT [None]
  - CYSTITIS [None]
  - VULVOVAGINAL DISCOMFORT [None]
  - URETHRAL PAIN [None]
  - MEDICAL DEVICE DISCOMFORT [None]
  - DEPRESSION [None]
  - FATIGUE [None]
  - VULVOVAGINAL RASH [None]
